FAERS Safety Report 21364638 (Version 4)
Quarter: 2023Q2

REPORT INFORMATION
  Report Type: Spontaneous
  Country: US (occurrence: US)
  Receive Date: 20220922
  Receipt Date: 20230608
  Transmission Date: 20230722
  Serious: Yes (Other)
  Sender: FDA-Public Use
  Company Number: US-SA-2022SA391080

PATIENT
  Age: 10 Year
  Sex: Male

DRUGS (8)
  1. ELOCTATE [Suspect]
     Active Substance: EFMOROCTOCOG ALFA
     Indication: Factor VIII deficiency
     Dosage: 2145 U (2145 U EVERY 48 HRS)
     Route: 042
     Dates: start: 20191015
  2. ELOCTATE [Suspect]
     Active Substance: EFMOROCTOCOG ALFA
     Indication: Factor VIII deficiency
     Dosage: 2145 U (2145 U EVERY 48 HRS)
     Route: 042
     Dates: start: 20191015
  3. ELOCTATE [Suspect]
     Active Substance: EFMOROCTOCOG ALFA
     Dosage: 2596 U, QD
     Route: 042
     Dates: start: 201910
  4. ELOCTATE [Suspect]
     Active Substance: EFMOROCTOCOG ALFA
     Dosage: 2596 U, QD
     Route: 042
     Dates: start: 201910
  5. ELOCTATE [Suspect]
     Active Substance: EFMOROCTOCOG ALFA
     Dosage: 596 U, QD; 596 UNITS, SLOW IV PUSH EVERY 48 HOURS FOR PROPHYLAXIS AND ONCE DAILY AS NEEDED FOR BLEED
     Route: 042
  6. ELOCTATE [Suspect]
     Active Substance: EFMOROCTOCOG ALFA
     Dosage: 596 U, QD; 596 UNITS, SLOW IV PUSH EVERY 48 HOURS FOR PROPHYLAXIS AND ONCE DAILY AS NEEDED FOR BLEED
     Route: 042
  7. ELOCTATE [Suspect]
     Active Substance: EFMOROCTOCOG ALFA
     Dosage: 2000 U
     Route: 042
  8. ELOCTATE [Suspect]
     Active Substance: EFMOROCTOCOG ALFA
     Dosage: 2000 U
     Route: 042

REACTIONS (3)
  - Haemorrhage [Unknown]
  - Haemorrhage [Unknown]
  - Contusion [Unknown]

NARRATIVE: CASE EVENT DATE: 20220917
